FAERS Safety Report 21279367 (Version 1)
Quarter: 2022Q3

REPORT INFORMATION
  Report Type: Spontaneous
  Country: FR (occurrence: FR)
  Receive Date: 20220901
  Receipt Date: 20220901
  Transmission Date: 20221027
  Serious: Yes (Hospitalization)
  Sender: FDA-Public Use
  Company Number: None

PATIENT
  Age: 46 Year
  Sex: Male
  Weight: 79.4 kg

DRUGS (4)
  1. METHOTREXATE (METHOTREXATE SODIUM) [Suspect]
     Active Substance: METHOTREXATE SODIUM
     Indication: Acute lymphocytic leukaemia
     Dosage: DURATION: 1 DAY, UNIT DOSE: 15 MG
     Dates: start: 20220715, end: 20220716
  2. VINCRISTINE [Suspect]
     Active Substance: VINCRISTINE
     Indication: Acute lymphocytic leukaemia
     Dosage: DURATION : 1 DAY, UNIT DOSE: 2 MG, VINCRISTINE HOSPIRA 2 MG/2 ML
     Dates: start: 20220715, end: 20220716
  3. PURINETHOL [Suspect]
     Active Substance: MERCAPTOPURINE
     Indication: Acute lymphocytic leukaemia
     Dosage: FORM STRENGTH : 50 MG, DURATION: 1 DAY, UNIT DOSE: 125 MG, SCORED TABLET
     Dates: start: 20220715, end: 20220716
  4. CYTARABINE [Suspect]
     Active Substance: CYTARABINE
     Indication: Acute lymphocytic leukaemia
     Dosage: FORM STRENGTH : 100 MG/ML, DURATION: 1 DAY, UNIT DOSE: 40 MG
     Dates: start: 20220715, end: 20220716

REACTIONS (1)
  - Posterior reversible encephalopathy syndrome [Recovering/Resolving]

NARRATIVE: CASE EVENT DATE: 20220718
